FAERS Safety Report 16105621 (Version 1)
Quarter: 2019Q1

REPORT INFORMATION
  Report Type: Spontaneous
  Country: DE (occurrence: DE)
  Receive Date: 20190322
  Receipt Date: 20190322
  Transmission Date: 20190418
  Serious: Yes (Hospitalization)
  Sender: FDA-Public Use
  Company Number: DE-MYLANLABS-2010S1017671

PATIENT
  Age: 95 Year
  Sex: Female
  Weight: 54.4 kg

DRUGS (11)
  1. TORASEMIDE [Suspect]
     Active Substance: TORSEMIDE
     Indication: HYPERTENSION
     Dosage: 10 MILLIGRAM, BID
     Route: 048
  2. DIGITOXIN [Suspect]
     Active Substance: DIGITOXIN
     Indication: ATRIAL FIBRILLATION
     Dosage: .07 MG,ONCE
     Route: 048
     Dates: end: 20081008
  3. METHIZOL [Concomitant]
     Active Substance: METHIMAZOLE
     Indication: HYPERTHYROIDISM
     Dosage: 5 MILLIGRAM, ONCE
     Route: 048
  4. DIGITOXIN [Suspect]
     Active Substance: DIGITOXIN
     Dosage: 0.04 MILLIGRAM, QD
     Route: 048
     Dates: start: 20081006, end: 20081008
  5. BERLOSIN [Concomitant]
     Active Substance: METAMIZOLE
     Indication: FEMORAL NECK FRACTURE
     Dosage: 500 MILLIGRAM, QD
     Route: 048
     Dates: start: 2008
  6. MELPERONE [Concomitant]
     Active Substance: MELPERONE
     Indication: DEMENTIA
     Dosage: 25 MG,ONCE
     Route: 048
  7. TORASEMIDE [Suspect]
     Active Substance: TORSEMIDE
     Dosage: 10 MILLIGRAM, QD
     Route: 048
  8. IBUPROFEN. [Concomitant]
     Active Substance: IBUPROFEN
     Indication: FEMORAL NECK FRACTURE
     Dosage: 400 MILLIGRAM, QD
     Route: 048
     Dates: start: 2008
  9. CHLORALDURAT [Concomitant]
     Active Substance: CHLORAL HYDRATE
     Indication: SLEEP DISORDER
     Dosage: 250 MILLIGRAM, ONCE
     Route: 048
  10. CLEXANE [Concomitant]
     Active Substance: ENOXAPARIN SODIUM
     Indication: FEMORAL NECK FRACTURE
     Dosage: 60 MILLIGRAM, QD
     Route: 058
     Dates: start: 2008
  11. NEXIUM MUPS                        /01479302/ [Concomitant]
     Active Substance: ESOMEPRAZOLE MAGNESIUM
     Indication: PROPHYLAXIS AGAINST GASTROINTESTINAL ULCER
     Dosage: 20 MILLIGRAM, QD
     Route: 048
     Dates: start: 2008

REACTIONS (2)
  - Hypokalaemia [Recovered/Resolved]
  - Bradyarrhythmia [Recovered/Resolved]

NARRATIVE: CASE EVENT DATE: 20081005
